FAERS Safety Report 5844664-4 (Version None)
Quarter: 2008Q3

REPORT INFORMATION
  Report Type: 
  Country: None (occurrence: None)
  Receive Date: 20080812
  Receipt Date: 20080805
  Transmission Date: 20090109
  Serious: Yes (Hospitalization)
  Sender: FDA-Public Use
  Company Number: 2008SP015698

PATIENT
  Age: 52 Year
  Sex: Male

DRUGS (2)
  1. VIRAFERONPEG [Suspect]
     Indication: HEPATITIS B
     Dosage: 150 MCG; QW; SC
     Route: 058
     Dates: start: 20080505, end: 20080602
  2. PEGASYS [Suspect]
     Indication: HEPATITIS B
     Dosage: 180 MCG; QW; SC
     Route: 058
     Dates: start: 20080102, end: 20080505

REACTIONS (1)
  - POLYNEUROPATHY [None]
